FAERS Safety Report 8265785-5 (Version None)
Quarter: 2012Q2

REPORT INFORMATION
  Report Type: 
  Country: None (occurrence: None)
  Receive Date: 20120406
  Receipt Date: 20120326
  Transmission Date: 20120825
  Serious: Yes (Other)
  Sender: FDA-Public Use
  Company Number: PHEH2012US005386

PATIENT
  Sex: Male

DRUGS (12)
  1. ATENOLOL [Concomitant]
  2. CELEBREX [Concomitant]
  3. VITAMIN D [Concomitant]
  4. VITAMIN B-12 [Concomitant]
  5. LUMIGAN [Concomitant]
  6. GLEEVEC [Suspect]
     Dosage: 400 MG, QD
     Dates: start: 20040101
  7. ASCORBIC ACID [Concomitant]
  8. WARFARIN SODIUM [Concomitant]
     Dosage: 5.2 MG
  9. LOVENOX [Concomitant]
     Dosage: 80 MG
  10. COUMADIN [Concomitant]
     Indication: HYPERCOAGULATION
  11. FISH OIL [Concomitant]
  12. FOLIC ACID [Concomitant]

REACTIONS (2)
  - INTERNATIONAL NORMALISED RATIO INCREASED [None]
  - CEREBROVASCULAR ACCIDENT [None]
